FAERS Safety Report 17217436 (Version 1)
Quarter: 2019Q4

REPORT INFORMATION
  Report Type: Spontaneous
  Country: AE (occurrence: AE)
  Receive Date: 20191231
  Receipt Date: 20191231
  Transmission Date: 20200122
  Serious: Yes (Life-Threatening, Hospitalization, Other)
  Sender: FDA-Public Use
  Company Number: AE-AUROBINDO-AUR-APL-2019-105979

PATIENT
  Age: 34 Year
  Sex: Male

DRUGS (1)
  1. MOXIFLOXACIN TABLET [Suspect]
     Active Substance: MOXIFLOXACIN
     Indication: LOWER RESPIRATORY TRACT INFECTION
     Dosage: UNK
     Route: 065

REACTIONS (7)
  - Thrombocytosis [Recovered/Resolved]
  - Stevens-Johnson syndrome [Recovering/Resolving]
  - Coronary artery thrombosis [Recovered/Resolved]
  - Glycosylated haemoglobin increased [Unknown]
  - Acute myocardial infarction [Recovered/Resolved]
  - Liver function test abnormal [Unknown]
  - Oral candidiasis [Recovering/Resolving]
